FAERS Safety Report 4324730-5 (Version None)
Quarter: 2004Q1

REPORT INFORMATION
  Report Type: 
  Country: None (occurrence: None)
  Receive Date: 20040326
  Receipt Date: 20030411
  Transmission Date: 20041129
  Serious: Yes (Hospitalization, Disabling, Other)
  Sender: FDA-Public Use
  Company Number: WAES 0304USA01390

PATIENT
  Age: 45 Year
  Sex: Male
  Weight: 99 kg

DRUGS (6)
  1. ASPIRIN [Concomitant]
  2. PLAVIX [Concomitant]
     Dates: start: 19990409
  3. CARDIZEM [Concomitant]
     Dates: start: 19990409
  4. MAXAIR [Concomitant]
     Route: 055
     Dates: start: 19990527
  5. VIOXX [Suspect]
     Indication: HEADACHE
     Route: 048
     Dates: start: 19990615, end: 20000628
  6. COUMADIN [Concomitant]
     Dates: start: 19990615

REACTIONS (32)
  - ANGINA UNSTABLE [None]
  - ANXIETY [None]
  - BACK DISORDER [None]
  - BLOOD CHOLESTEROL INCREASED [None]
  - BLOOD HOMOCYSTEINE INCREASED [None]
  - BLOOD TRIGLYCERIDES INCREASED [None]
  - CARDIAC FAILURE CONGESTIVE [None]
  - CARDIAC MURMUR [None]
  - CORONARY ARTERY ATHEROSCLEROSIS [None]
  - CORONARY ARTERY DISEASE [None]
  - CORONARY ARTERY RESTENOSIS [None]
  - DEPRESSION [None]
  - DIABETES MELLITUS NON-INSULIN-DEPENDENT [None]
  - DISTURBANCE IN ATTENTION [None]
  - DYSPEPSIA [None]
  - ELECTROCARDIOGRAM ST-T CHANGE [None]
  - GASTROOESOPHAGEAL REFLUX DISEASE [None]
  - HIATUS HERNIA [None]
  - HIGH DENSITY LIPOPROTEIN DECREASED [None]
  - INSOMNIA [None]
  - INTERVERTEBRAL DISC DEGENERATION [None]
  - LEFT VENTRICULAR END-DIASTOLIC PRESSURE INCREASED [None]
  - LOW DENSITY LIPOPROTEIN INCREASED [None]
  - MYOCARDIAL INFARCTION [None]
  - NEPHROLITHIASIS [None]
  - POST LAMINECTOMY SYNDROME [None]
  - RADICULOPATHY [None]
  - STRESS SYMPTOMS [None]
  - SUICIDAL IDEATION [None]
  - TOTAL CHOLESTEROL/HDL RATIO DECREASED [None]
  - UMBILICAL HERNIA [None]
  - VERY LOW DENSITY LIPOPROTEIN INCREASED [None]
